FAERS Safety Report 7968820-4 (Version None)
Quarter: 2011Q4

REPORT INFORMATION
  Report Type: 
  Country: None (occurrence: None)
  Receive Date: 20111209
  Receipt Date: 20111128
  Transmission Date: 20120403
  Serious: Yes (Other)
  Sender: FDA-Public Use
  Company Number: CN-PFIZER INC-2011290300

PATIENT
  Age: 66 Year
  Sex: Female

DRUGS (9)
  1. DEXAMETHASONE [Suspect]
     Dosage: 5 MG, UNK
     Route: 042
  2. AMINOPHYLLINE [Concomitant]
     Dosage: 0.25 G, Q12H
  3. LEVOFLOXACIN [Concomitant]
  4. MEZLOCILLIN SODIUM [Concomitant]
     Dosage: 4.5 G, Q8H
     Route: 041
  5. NITROGLYCERIN [Concomitant]
     Dosage: UNK
     Route: 060
  6. AMBROXOL [Concomitant]
     Dosage: 300 MG, Q12H
     Route: 041
  7. ISOSORBIDE DINITRATE [Concomitant]
     Dosage: 50 MG, UNK
  8. SOLU-MEDROL [Suspect]
     Indication: WHEEZING
     Dosage: 40 MG, UNK
     Route: 017
  9. ETIMICIN [Concomitant]
     Dosage: 200 MG, 1X/DAY
     Route: 041

REACTIONS (7)
  - EUPHORIC MOOD [None]
  - HALLUCINATION [None]
  - CONFUSIONAL STATE [None]
  - CLUTTERING [None]
  - TREATMENT NONCOMPLIANCE [None]
  - PSYCHIATRIC SYMPTOM [None]
  - DELIRIUM [None]
